FAERS Safety Report 8450316-7 (Version None)
Quarter: 2012Q2

REPORT INFORMATION
  Report Type: 
  Country: None (occurrence: None)
  Receive Date: 20120620
  Receipt Date: 20120607
  Transmission Date: 20120825
  Serious: Yes (Other)
  Sender: FDA-Public Use
  Company Number: JP-VERTEX PHARMACEUTICALS INC.-AE-2012-008716

PATIENT
  Age: 68 Year
  Sex: Female

DRUGS (7)
  1. REBETOL [Concomitant]
     Route: 048
     Dates: start: 20120328, end: 20120501
  2. TELAVIC (TELAPREVIR) [Suspect]
     Route: 048
     Dates: start: 20120403, end: 20120515
  3. REBETOL [Concomitant]
     Indication: HEPATITIS C
     Route: 048
     Dates: start: 20120221, end: 20120312
  4. REBETOL [Concomitant]
     Route: 048
     Dates: start: 20120313, end: 20120327
  5. PEG-INTRON [Concomitant]
     Indication: HEPATITIS C
     Route: 051
     Dates: start: 20120221
  6. TELAVIC (TELAPREVIR) [Suspect]
     Indication: HEPATITIS C
     Route: 048
     Dates: start: 20120221, end: 20120402
  7. REBETOL [Concomitant]
     Route: 048
     Dates: start: 20120502

REACTIONS (3)
  - RASH [None]
  - HAEMOGLOBIN DECREASED [None]
  - HYPERURICAEMIA [None]
